FAERS Safety Report 8119130-6 (Version None)
Quarter: 2012Q1

REPORT INFORMATION
  Report Type: 
  Country: None (occurrence: None)
  Receive Date: 20120207
  Receipt Date: 20120207
  Transmission Date: 20120608
  Serious: No
  Sender: FDA-Public Use
  Company Number: None

PATIENT
  Age: 28 Year
  Sex: Female
  Weight: 70.76 kg

DRUGS (1)
  1. MIRENA [Suspect]
     Indication: CONTRACEPTION
     Route: 015
     Dates: start: 20110829, end: 20120206

REACTIONS (5)
  - PAIN IN EXTREMITY [None]
  - MUSCULOSKELETAL STIFFNESS [None]
  - WEIGHT INCREASED [None]
  - ARTHRALGIA [None]
  - QUALITY OF LIFE DECREASED [None]
